FAERS Safety Report 24644226 (Version 2)
Quarter: 2025Q1

REPORT INFORMATION
  Report Type: Report from Study
  Country: IE (occurrence: IE)
  Receive Date: 20241120
  Receipt Date: 20250117
  Transmission Date: 20250408
  Serious: Yes (Other)
  Sender: ALEXION PHARMACEUTICALS
  Company Number: IE-ASTRAZENECA-202411EEA014468IE

PATIENT
  Age: 65 Year

DRUGS (22)
  1. BENRALIZUMAB [Suspect]
     Active Substance: BENRALIZUMAB
     Indication: Asthma
  2. BENRALIZUMAB [Suspect]
     Active Substance: BENRALIZUMAB
     Route: 058
  3. BENRALIZUMAB [Suspect]
     Active Substance: BENRALIZUMAB
  4. BENRALIZUMAB [Suspect]
     Active Substance: BENRALIZUMAB
     Route: 058
  5. BENRALIZUMAB [Suspect]
     Active Substance: BENRALIZUMAB
  6. BENRALIZUMAB [Suspect]
     Active Substance: BENRALIZUMAB
     Route: 058
  7. BENRALIZUMAB [Suspect]
     Active Substance: BENRALIZUMAB
  8. BENRALIZUMAB [Suspect]
     Active Substance: BENRALIZUMAB
     Route: 058
  9. BENRALIZUMAB [Suspect]
     Active Substance: BENRALIZUMAB
  10. BENRALIZUMAB [Suspect]
     Active Substance: BENRALIZUMAB
     Route: 058
  11. BENRALIZUMAB [Suspect]
     Active Substance: BENRALIZUMAB
  12. BENRALIZUMAB [Suspect]
     Active Substance: BENRALIZUMAB
     Route: 058
  13. FASENRA [Concomitant]
     Active Substance: BENRALIZUMAB
     Dosage: 30 MILLIGRAM, Q8W
     Route: 058
  14. FASENRA [Concomitant]
     Active Substance: BENRALIZUMAB
     Dosage: 30 MILLIGRAM, Q8W
  15. SYMBICORT [Concomitant]
     Active Substance: BUDESONIDE\FORMOTEROL FUMARATE DIHYDRATE
     Dosage: 400 MICROGRAM, BID
     Route: 050
  16. SYMBICORT [Concomitant]
     Active Substance: BUDESONIDE\FORMOTEROL FUMARATE DIHYDRATE
     Dosage: 400 MICROGRAM, BID
     Route: 050
  17. METFORMIN [Concomitant]
     Active Substance: METFORMIN HYDROCHLORIDE
     Dosage: 500 MILLIGRAM, BID
     Route: 050
  18. METFORMIN [Concomitant]
     Active Substance: METFORMIN HYDROCHLORIDE
     Dosage: 500 MILLIGRAM, BID
     Route: 050
  19. VENTOLIN [Concomitant]
     Active Substance: ALBUTEROL SULFATE
     Route: 050
  20. VENTOLIN [Concomitant]
     Active Substance: ALBUTEROL SULFATE
     Route: 050
  21. SPIRIVA [Concomitant]
     Active Substance: TIOTROPIUM BROMIDE MONOHYDRATE
     Dosage: 2.5 MICROGRAM, QD
     Route: 050
  22. SPIRIVA [Concomitant]
     Active Substance: TIOTROPIUM BROMIDE MONOHYDRATE
     Dosage: 2.5 MICROGRAM, QD
     Route: 050

REACTIONS (4)
  - Lower respiratory tract infection [Unknown]
  - Nasopharyngitis [Unknown]
  - Oropharyngeal pain [Unknown]
  - Rhinorrhoea [Unknown]
